FAERS Safety Report 18591511 (Version 2)
Quarter: 2020Q4

REPORT INFORMATION
  Report Type: Spontaneous
  Country: US (occurrence: US)
  Receive Date: 20201208
  Receipt Date: 20201215
  Transmission Date: 20210114
  Serious: No
  Sender: FDA-Public Use
  Company Number: US-TAKEDA-2020TUS053150

PATIENT
  Sex: Female
  Weight: 81.63 kg

DRUGS (28)
  1. ACETAMINOPHEN. [Concomitant]
     Active Substance: ACETAMINOPHEN
  2. DULERA [Concomitant]
     Active Substance: FORMOTEROL FUMARATE DIHYDRATE\MOMETASONE FUROATE
  3. TRIAMTERENE HCTZ [Concomitant]
     Active Substance: HYDROCHLOROTHIAZIDE\TRIAMTERENE
  4. SIMVASTATIN. [Concomitant]
     Active Substance: SIMVASTATIN
  5. LIDOCAINE. [Concomitant]
     Active Substance: LIDOCAINE
  6. SINGULAIR [Concomitant]
     Active Substance: MONTELUKAST SODIUM
  7. CYANOCOBALAMIN. [Concomitant]
     Active Substance: CYANOCOBALAMIN
  8. VENTOLINE [SALBUTAMOL] [Concomitant]
     Active Substance: ALBUTEROL SULFATE
  9. PROMETHAZINE [Concomitant]
     Active Substance: PROMETHAZINE HYDROCHLORIDE
  10. OXYGEN. [Concomitant]
     Active Substance: OXYGEN
  11. GAMMAGARD LIQUID [Suspect]
     Active Substance: HUMAN IMMUNOGLOBULIN G
     Indication: MYASTHENIA GRAVIS
     Dosage: 30 GRAM, Q5WEEKS
     Route: 042
     Dates: start: 20201130
  12. ALPRAZOLAM. [Concomitant]
     Active Substance: ALPRAZOLAM
  13. BUDESONIDE. [Concomitant]
     Active Substance: BUDESONIDE
  14. ATROVENT [Concomitant]
     Active Substance: IPRATROPIUM BROMIDE
  15. HEPARIN [Concomitant]
     Active Substance: HEPARIN SODIUM
  16. PYRIDOSTIGMINE [Concomitant]
     Active Substance: PYRIDOSTIGMINE
  17. POTASSIUM ACETATE. [Concomitant]
     Active Substance: POTASSIUM ACETATE
  18. EPINEPHRINE. [Concomitant]
     Active Substance: EPINEPHRINE
  19. FLUTICASONE. [Concomitant]
     Active Substance: FLUTICASONE
  20. ZOFRAN [Concomitant]
     Active Substance: ONDANSETRON HYDROCHLORIDE
  21. ALBUTEROL [SALBUTAMOL] [Concomitant]
     Active Substance: ALBUTEROL
  22. SERTRALINE [Concomitant]
     Active Substance: SERTRALINE HYDROCHLORIDE
  23. SODIUM CHLORIDE. [Concomitant]
     Active Substance: SODIUM CHLORIDE
  24. SOLIRIS [Concomitant]
     Active Substance: ECULIZUMAB
  25. PREDNISONE. [Concomitant]
     Active Substance: PREDNISONE
  26. TIZANIDINE. [Concomitant]
     Active Substance: TIZANIDINE
  27. FUROSEMIDE. [Concomitant]
     Active Substance: FUROSEMIDE
  28. TUSSI PRES-B [Concomitant]

REACTIONS (6)
  - Dysphonia [Unknown]
  - Inappropriate schedule of product administration [Unknown]
  - Infusion site reaction [Recovered/Resolved]
  - Pharyngeal swelling [Recovered/Resolved]
  - Stridor [Recovered/Resolved]
  - Cough [Recovered/Resolved]
